FAERS Safety Report 22105506 (Version 6)
Quarter: 2024Q1

REPORT INFORMATION
  Report Type: Report from Study
  Country: KR (occurrence: KR)
  Receive Date: 20230317
  Receipt Date: 20240325
  Transmission Date: 20240410
  Serious: Yes (Hospitalization, Other)
  Sender: FDA-Public Use
  Company Number: KR-CELLTRION INC.-2022KR018660

PATIENT

DRUGS (16)
  1. HERZUMA [Suspect]
     Active Substance: TRASTUZUMAB-PKRB
     Indication: Breast cancer
     Dosage: UNK
     Route: 042
     Dates: start: 20211109, end: 20220805
  2. HERZUMA [Suspect]
     Active Substance: TRASTUZUMAB-PKRB
     Dosage: UNK
     Route: 042
     Dates: end: 20230303
  3. HERZUMA [Suspect]
     Active Substance: TRASTUZUMAB-PKRB
     Dosage: UNK (CYCLE 38)
     Route: 042
     Dates: end: 20231228
  4. HERZUMA [Suspect]
     Active Substance: TRASTUZUMAB-PKRB
     Dosage: UNK
     Route: 042
     Dates: end: 20240228
  5. HERZUMA [Suspect]
     Active Substance: TRASTUZUMAB-PKRB
     Dosage: UNK, (CYCLE 41)
     Route: 042
     Dates: end: 20240314
  6. RIBOCICLIB [Suspect]
     Active Substance: RIBOCICLIB
     Indication: Breast cancer
     Dosage: 3 TABS PER DAY, 21 DAYS
     Route: 048
     Dates: start: 20211109, end: 20220805
  7. RIBOCICLIB [Suspect]
     Active Substance: RIBOCICLIB
     Dosage: UNK, CYCLIC (CYCLE 17)
     Route: 048
     Dates: end: 20230303
  8. RIBOCICLIB [Suspect]
     Active Substance: RIBOCICLIB
     Dosage: UNK
     Route: 048
     Dates: end: 20231228
  9. RIBOCICLIB [Suspect]
     Active Substance: RIBOCICLIB
     Dosage: CYCLE 26
     Route: 048
     Dates: start: 20231213
  10. RIBOCICLIB [Suspect]
     Active Substance: RIBOCICLIB
     Dosage: UNK (CYCLE 28)
     Route: 048
     Dates: start: 20240228
  11. ALDACTONE [Concomitant]
     Active Substance: SPIRONOLACTONE
     Indication: Hypertension
     Dosage: 25 MILLIGRAM (1 TAB D)
     Route: 048
     Dates: start: 2016
  12. NORVASC [Concomitant]
     Active Substance: AMLODIPINE BESYLATE
     Indication: Hypertension
     Dosage: 6.944 MILLIGRAM (1 TAB D)
     Route: 048
     Dates: start: 2016
  13. DENOSUMAB [Concomitant]
     Active Substance: DENOSUMAB
     Indication: Metastases to bone
     Dosage: 120 MILLIGRAM (1 VIAL, EVERY 4 WEEKS)
     Route: 058
     Dates: start: 20211109
  14. ATORVASTATIN CALCIUM [Concomitant]
     Active Substance: ATORVASTATIN CALCIUM
     Indication: Hyperlipidaemia
     Dosage: 10 MG (D) PO
     Route: 048
     Dates: start: 20240103
  15. FOLIC ACID [Concomitant]
     Active Substance: FOLIC ACID
     Indication: Osteopenia
     Dosage: 1 MG (D) PO
     Route: 048
     Dates: start: 20240108
  16. FILGRASTIM [Concomitant]
     Active Substance: FILGRASTIM
     Indication: Neutrophil count decreased
     Dosage: 150 MICROGRAM, QD
     Route: 058
     Dates: start: 20240106, end: 20240106

REACTIONS (2)
  - Lymphadenitis [Recovering/Resolving]
  - Femoral neck fracture [Not Recovered/Not Resolved]

NARRATIVE: CASE EVENT DATE: 20230305
